FAERS Safety Report 4698441-0 (Version None)
Quarter: 2005Q2

REPORT INFORMATION
  Report Type: 
  Country: None (occurrence: None)
  Receive Date: 20050622
  Receipt Date: 20050609
  Transmission Date: 20051028
  Serious: Yes (Disabling)
  Sender: FDA-Public Use
  Company Number: 2005087952

PATIENT
  Age: 54 Year
  Sex: Male

DRUGS (2)
  1. BEXTRA [Suspect]
     Indication: ILL-DEFINED DISORDER
     Dosage: (UNK, 1 D)
     Dates: start: 20040930
  2. VIOXX [Suspect]
     Indication: ILL-DEFINED DISORDER
     Dates: end: 20040930

REACTIONS (1)
  - CEREBROVASCULAR ACCIDENT [None]
